FAERS Safety Report 10280200 (Version 1)
Quarter: 2014Q3

REPORT INFORMATION
  Report Type: Spontaneous
  Country: US (occurrence: None)
  Receive Date: 20140701
  Receipt Date: 20140701
  Transmission Date: 20150326
  Serious: No
  Sender: FDA-Public Use
  Company Number: None

PATIENT
  Age: 54 Year
  Sex: Male
  Weight: 83.01 kg

DRUGS (1)
  1. ISOSORBIDE MN ER 60 MG KREMERS UR [Suspect]
     Active Substance: ISOSORBIDE
     Indication: DRUG THERAPY
     Dosage: 1 TABLET ONCE DAILY TAKEN BY MOUTH
     Route: 048
     Dates: start: 20140627, end: 20140628

REACTIONS (4)
  - Pain [None]
  - Headache [None]
  - Arthralgia [None]
  - Dizziness [None]

NARRATIVE: CASE EVENT DATE: 20140627
